FAERS Safety Report 18966387 (Version 4)
Quarter: 2023Q2

REPORT INFORMATION
  Report Type: Spontaneous
  Country: RU (occurrence: None)
  Receive Date: 20210304
  Receipt Date: 20230412
  Transmission Date: 20230722
  Serious: Yes (Other)
  Sender: FDA-Public Use
  Company Number: RU-ROCHE-2775688

PATIENT
  Age: 42 Year
  Sex: Female

DRUGS (10)
  1. OBINUTUZUMAB [Suspect]
     Active Substance: OBINUTUZUMAB
     Indication: Follicular lymphoma
     Dosage: DAY 8 CYCLE, 100 MG+900 MG. (ONE DOSE (100+900 MG) FOLLOWED BY 1,000 MG)
     Route: 042
     Dates: start: 202007
  2. OBINUTUZUMAB [Suspect]
     Active Substance: OBINUTUZUMAB
     Dosage: DAY 8 CYCLE
     Route: 041
     Dates: start: 20200731
  3. OBINUTUZUMAB [Suspect]
     Active Substance: OBINUTUZUMAB
     Dosage: DAY 15 CYCLE
     Route: 041
     Dates: start: 202007
  4. OBINUTUZUMAB [Suspect]
     Active Substance: OBINUTUZUMAB
     Dosage: CYCLE 2 G-B
     Route: 041
     Dates: start: 20200827
  5. OBINUTUZUMAB [Suspect]
     Active Substance: OBINUTUZUMAB
     Dosage: CYCLE 3 G-B
     Route: 041
     Dates: start: 202011
  6. OBINUTUZUMAB [Suspect]
     Active Substance: OBINUTUZUMAB
     Dosage: CYCLE 4 G-B
     Route: 041
     Dates: start: 202012
  7. BENDAMUSTINE [Suspect]
     Active Substance: BENDAMUSTINE
     Indication: Follicular lymphoma
     Dosage: DAYS 1-2 CYCLE
     Route: 065
     Dates: start: 202007
  8. BENDAMUSTINE [Suspect]
     Active Substance: BENDAMUSTINE
     Route: 065
     Dates: start: 202008
  9. BENDAMUSTINE [Suspect]
     Active Substance: BENDAMUSTINE
     Route: 065
     Dates: start: 202011
  10. BENDAMUSTINE [Suspect]
     Active Substance: BENDAMUSTINE
     Route: 065
     Dates: start: 202012

REACTIONS (2)
  - Thrombocytopenia [Recovered/Resolved]
  - COVID-19 pneumonia [Unknown]

NARRATIVE: CASE EVENT DATE: 20210101
